FAERS Safety Report 8056388-6 (Version None)
Quarter: 2012Q1

REPORT INFORMATION
  Report Type: 
  Country: None (occurrence: None)
  Receive Date: 20120119
  Receipt Date: 20120112
  Transmission Date: 20120608
  Serious: Yes (Other)
  Sender: FDA-Public Use
  Company Number: IT-ROCHE-1031262

PATIENT
  Sex: Female

DRUGS (1)
  1. LUCENTIS [Suspect]
     Indication: RETINAL NEOVASCULARISATION
     Route: 050
     Dates: start: 20111007, end: 20111209

REACTIONS (1)
  - VITREOUS HAEMORRHAGE [None]
